FAERS Safety Report 16725758 (Version 5)
Quarter: 2019Q4

REPORT INFORMATION
  Report Type: Spontaneous
  Country: US (occurrence: US)
  Receive Date: 20190821
  Receipt Date: 20191129
  Transmission Date: 20200122
  Serious: Yes (Other)
  Sender: FDA-Public Use
  Company Number: US-PFIZER INC-2019353547

PATIENT
  Age: 23 Year
  Sex: Female
  Weight: 38.56 kg

DRUGS (1)
  1. DEPO-PROVERA [Suspect]
     Active Substance: MEDROXYPROGESTERONE ACETATE
     Indication: DYSMENORRHOEA
     Dosage: UNK, EVERY 3 MONTHS (DOSAGE SHOT FROM ROTATED ARMS EVERY THREE MONTHS)
     Dates: start: 2014, end: 201812

REACTIONS (13)
  - Brain injury [Recovered/Resolved]
  - Off label use [Recovered/Resolved]
  - Blood prolactin increased [Unknown]
  - Hot flush [Unknown]
  - Vestibular migraine [Not Recovered/Not Resolved]
  - Product use in unapproved indication [Recovered/Resolved]
  - Withdrawal syndrome [Not Recovered/Not Resolved]
  - Vision blurred [Not Recovered/Not Resolved]
  - Insomnia [Unknown]
  - Panic attack [Not Recovered/Not Resolved]
  - Night sweats [Unknown]
  - Prolactin-producing pituitary tumour [Unknown]
  - Loss of personal independence in daily activities [Unknown]
